FAERS Safety Report 5961570-5 (Version None)
Quarter: 2008Q4

REPORT INFORMATION
  Report Type: 
  Country: None (occurrence: None)
  Receive Date: 20081121
  Receipt Date: 20081118
  Transmission Date: 20090506
  Serious: Yes (Death)
  Sender: FDA-Public Use
  Company Number: B0546342A

PATIENT
  Age: 88 Year
  Sex: Female

DRUGS (8)
  1. ARIXTRA [Suspect]
     Indication: THROMBOSIS PROPHYLAXIS
     Dosage: 2.5MG PER DAY
     Route: 058
     Dates: start: 20080922, end: 20080925
  2. DEPAS [Concomitant]
     Dosage: 1.5MG PER DAY
     Route: 048
     Dates: start: 20080928
  3. MAGNESIUM OXIDE [Concomitant]
     Dosage: 1.5G PER DAY
     Route: 048
     Dates: start: 20080928
  4. MARZULENE S [Concomitant]
     Dosage: 1.98G PER DAY
     Route: 048
     Dates: start: 20080928
  5. HERBESSER [Concomitant]
     Dosage: 90MG PER DAY
     Route: 048
     Dates: start: 20080928
  6. ALMARL [Concomitant]
     Dosage: 5MG PER DAY
     Route: 048
     Dates: start: 20080928
  7. ITOROL [Concomitant]
     Dosage: 40MG PER DAY
     Route: 048
     Dates: start: 20080928
  8. GRAMALIL [Concomitant]
     Dosage: 100MG PER DAY
     Route: 048
     Dates: start: 20080928

REACTIONS (7)
  - ABDOMINAL PAIN [None]
  - DEFAECATION URGENCY [None]
  - HAEMATEMESIS [None]
  - SHOCK HAEMORRHAGIC [None]
  - UPPER GASTROINTESTINAL HAEMORRHAGE [None]
  - VENTRICULAR FIBRILLATION [None]
  - VOMITING [None]
